FAERS Safety Report 5135528-2 (Version None)
Quarter: 2006Q4

REPORT INFORMATION
  Report Type: 
  Country: None (occurrence: None)
  Receive Date: 20061026
  Receipt Date: 20061016
  Transmission Date: 20070319
  Serious: Yes (Hospitalization, Other)
  Sender: FDA-Public Use
  Company Number: US-ABBOTT-06P-163-0347053-00

PATIENT
  Sex: Female
  Weight: 114 kg

DRUGS (13)
  1. HUMIRA [Suspect]
     Indication: RHEUMATOID ARTHRITIS
     Route: 058
     Dates: start: 20000801, end: 20061001
  2. HUMIRA [Suspect]
     Dates: start: 20061001
  3. LEFLUNOMIDE [Concomitant]
     Indication: RHEUMATOID ARTHRITIS
     Route: 048
  4. PREDNISONE TAB [Concomitant]
     Indication: RHEUMATOID ARTHRITIS
     Route: 048
  5. LEXAPRO [Concomitant]
     Indication: DEPRESSION
     Route: 048
  6. IRBESARTAN [Concomitant]
     Indication: HYPERTENSION
     Route: 048
  7. AMLODIPINE BESYLATE [Concomitant]
     Indication: RHEUMATOID ARTHRITIS
     Route: 048
  8. HYDROCHLOROTHIAZIDE [Concomitant]
     Indication: DIURETIC THERAPY
     Route: 048
  9. THYROID TAB [Concomitant]
     Indication: HYPOTHYROIDISM
     Route: 048
  10. PANTOPRAZOLE SODIUM [Concomitant]
     Indication: STOMACH DISCOMFORT
     Route: 048
  11. GABAPENTIN [Concomitant]
     Indication: ARTHRITIS
     Route: 048
  12. MORPHINE [Concomitant]
     Indication: PAIN
     Route: 048
  13. DIHYDROERGOTAMINE MESYLATE [Concomitant]
     Indication: MIGRAINE
     Dosage: 4 NASAL SQUIRTS
     Route: 045

REACTIONS (5)
  - GALLBLADDER NON-FUNCTIONING [None]
  - PNEUMONIA [None]
  - RHEUMATOID ARTHRITIS [None]
  - URINARY TRACT INFECTION [None]
  - WHITE BLOOD CELL COUNT INCREASED [None]
